FAERS Safety Report 18762899 (Version 2)
Quarter: 2021Q2

REPORT INFORMATION
  Report Type: Spontaneous
  Country: ES (occurrence: ES)
  Receive Date: 20210120
  Receipt Date: 20210406
  Transmission Date: 20210717
  Serious: Yes (Hospitalization)
  Sender: FDA-Public Use
  Company Number: ES-MYLANLABS-2021M1003068

PATIENT
  Age: 17 Year
  Sex: Female

DRUGS (25)
  1. VENLAFAXINE [Suspect]
     Active Substance: VENLAFAXINE HYDROCHLORIDE
     Indication: AFFECT LABILITY
     Dosage: 75 MILLIGRAM, QD
     Route: 065
  2. RISPERIDONE. [Suspect]
     Active Substance: RISPERIDONE
     Indication: OBSESSIVE THOUGHTS
  3. MAPROTILINE [Suspect]
     Active Substance: MAPROTILINE
     Indication: AFFECT LABILITY
     Dosage: 75 MILLIGRAM, QD
     Route: 065
  4. LORAZEPAM. [Suspect]
     Active Substance: LORAZEPAM
     Indication: INSOMNIA
     Dosage: 6.5 MILLIGRAM, QD
     Route: 065
  5. LORAZEPAM. [Suspect]
     Active Substance: LORAZEPAM
     Indication: OBSESSIVE THOUGHTS
  6. PAROXETINE. [Concomitant]
     Active Substance: PAROXETINE
     Dosage: 20 MILLIGRAM, QD
     Route: 065
  7. QUETIAPINE. [Suspect]
     Active Substance: QUETIAPINE
     Dosage: 600 MILLIGRAM, QD UP TO 600MG DAILY
     Route: 065
  8. RISPERIDONE. [Suspect]
     Active Substance: RISPERIDONE
     Indication: DEPRESSED MOOD
     Dosage: 2 MILLIGRAM, QD
     Route: 065
  9. LORAZEPAM. [Suspect]
     Active Substance: LORAZEPAM
     Indication: DEPRESSED MOOD
     Dosage: 9 MILLIGRAM, QD
     Route: 065
  10. RISPERIDONE. [Suspect]
     Active Substance: RISPERIDONE
     Indication: INSOMNIA
  11. THIORIDAZINE [Concomitant]
     Active Substance: THIORIDAZINE
     Indication: PRODUCT USED FOR UNKNOWN INDICATION
     Dosage: 80 MILLIGRAM, QD
     Route: 065
  12. RISPERIDONE. [Suspect]
     Active Substance: RISPERIDONE
     Indication: AFFECT LABILITY
     Dosage: 1 MILLIGRAM, QD
     Route: 065
  13. HALOPERIDOL. [Concomitant]
     Active Substance: HALOPERIDOL
     Indication: PRODUCT USED FOR UNKNOWN INDICATION
     Dosage: 2.5 MILLIGRAM
     Route: 030
  14. CIPROFLOXACIN. [Concomitant]
     Active Substance: CIPROFLOXACIN
     Indication: PRODUCT USED FOR UNKNOWN INDICATION
     Dosage: 1000 MILLIGRAM, QD
     Route: 065
  15. MAPROTILINE [Suspect]
     Active Substance: MAPROTILINE
     Indication: OBSESSIVE THOUGHTS
  16. LORAZEPAM. [Suspect]
     Active Substance: LORAZEPAM
     Indication: AFFECT LABILITY
     Dosage: 3 MILLIGRAM, QD
     Route: 065
  17. PAROXETINE. [Concomitant]
     Active Substance: PAROXETINE
     Indication: PRODUCT USED FOR UNKNOWN INDICATION
     Dosage: 40 MILLIGRAM, QD
     Route: 065
  18. VENLAFAXINE [Suspect]
     Active Substance: VENLAFAXINE HYDROCHLORIDE
     Indication: DEPRESSED MOOD
  19. DIPOTASSIUM CLORAZEPATE [Concomitant]
     Active Substance: CLORAZEPATE DIPOTASSIUM
     Indication: PRODUCT USED FOR UNKNOWN INDICATION
     Dosage: 10 MILLIGRAM
     Route: 030
  20. VENLAFAXINE [Suspect]
     Active Substance: VENLAFAXINE HYDROCHLORIDE
     Indication: OBSESSIVE THOUGHTS
  21. QUETIAPINE. [Suspect]
     Active Substance: QUETIAPINE
     Indication: CATATONIA
     Dosage: 400 MILLIGRAM, QD UP TO 400MG DAILY
     Route: 065
  22. QUETIAPINE. [Suspect]
     Active Substance: QUETIAPINE
     Dosage: GRADUALLY DECREASED TO DOSED (AFTER 10 DAYS REACHED TO 100 MG/DAY)
     Route: 065
  23. QUETIAPINE. [Suspect]
     Active Substance: QUETIAPINE
     Dosage: GRADUALLY DECREASED TO DOSED (AFTER 1 YEAR REACHED TO 300 MG/DAY)
     Route: 065
  24. MAPROTILINE [Suspect]
     Active Substance: MAPROTILINE
     Indication: DEPRESSED MOOD
  25. MAPROTILINE [Suspect]
     Active Substance: MAPROTILINE
     Indication: INSOMNIA

REACTIONS (3)
  - Monoplegia [Unknown]
  - Drug ineffective [Unknown]
  - Dysarthria [Unknown]
